FAERS Safety Report 4273229-3 (Version None)
Quarter: 2004Q1

REPORT INFORMATION
  Report Type: 
  Country: None (occurrence: None)
  Receive Date: 20040116
  Receipt Date: 20040106
  Transmission Date: 20041129
  Serious: Yes (Other)
  Sender: FDA-Public Use
  Company Number: GR-ROCHE-355229

PATIENT
  Age: 40 Year
  Sex: Male

DRUGS (1)
  1. TICLOPIDINE HCL [Suspect]
     Indication: PROPHYLAXIS
     Route: 065

REACTIONS (4)
  - ARTERIAL THROMBOSIS [None]
  - CARDIOGENIC SHOCK [None]
  - CHROMOSOMAL MUTATION [None]
  - CORONARY ARTERY THROMBOSIS [None]
